FAERS Safety Report 24415515 (Version 1)
Quarter: 2024Q4

REPORT INFORMATION
  Report Type: Spontaneous
  Country: US (occurrence: US)
  Receive Date: 20241009
  Receipt Date: 20241009
  Transmission Date: 20250115
  Serious: Yes (Other)
  Sender: ORGANON
  Company Number: US-ORGANON-O2408USA001138

PATIENT
  Sex: Female
  Weight: 122.45 kg

DRUGS (2)
  1. NEXPLANON [Suspect]
     Active Substance: ETONOGESTREL
     Indication: Contraception
     Dosage: 1 IMPLANT (LEFT ARM)
     Route: 059
     Dates: start: 20240626, end: 20240814
  2. NEXPLANON [Concomitant]
     Active Substance: ETONOGESTREL
     Dosage: 1 IMPLANT
     Route: 059

REACTIONS (9)
  - Device expulsion [Recovered/Resolved]
  - Implant site pain [Unknown]
  - Implant site swelling [Unknown]
  - Implant site erythema [Unknown]
  - Implant site inflammation [Unknown]
  - Implant site scar [Unknown]
  - Complication associated with device [Recovered/Resolved]
  - Device breakage [Recovered/Resolved]
  - Product quality issue [Unknown]

NARRATIVE: CASE EVENT DATE: 20240101
